FAERS Safety Report 23268958 (Version 2)
Quarter: 2023Q4

REPORT INFORMATION
  Report Type: Spontaneous
  Country: TR (occurrence: None)
  Receive Date: 20231206
  Receipt Date: 20231220
  Transmission Date: 20240110
  Serious: Yes (Hospitalization, Other)
  Sender: FDA-Public Use
  Company Number: TR-Unichem Pharmaceuticals (USA) Inc-UCM202311-001539

PATIENT
  Age: 72 Year
  Sex: Male

DRUGS (2)
  1. PHENYTOIN SODIUM [Suspect]
     Active Substance: PHENYTOIN SODIUM
     Indication: Seizure
     Dosage: UNKNOWN
  2. POLYETHYLENE GLYCOL [Suspect]
     Active Substance: POLYETHYLENE GLYCOL
     Indication: Bowel preparation
     Dosage: UNKNOWN

REACTIONS (9)
  - Psychomotor hyperactivity [Recovered/Resolved]
  - Agitation [Recovered/Resolved]
  - Hepatic enzyme increased [Unknown]
  - Confusional state [Recovered/Resolved]
  - Troponin increased [Recovered/Resolved]
  - Nausea [Recovered/Resolved]
  - Vomiting [Recovered/Resolved]
  - Drug level increased [Recovered/Resolved]
  - Toxicity to various agents [Recovered/Resolved]
